FAERS Safety Report 7985190-6 (Version None)
Quarter: 2011Q4

REPORT INFORMATION
  Report Type: 
  Country: None (occurrence: None)
  Receive Date: 20111216
  Receipt Date: 20111214
  Transmission Date: 20120403
  Serious: Yes (Death)
  Sender: FDA-Public Use
  Company Number: PHHY2011BR92456

PATIENT

DRUGS (9)
  1. ONBREZ [Suspect]
     Dosage: 150 MG, QD
     Dates: start: 20110801
  2. ZYLIUM [Concomitant]
  3. LASIX [Concomitant]
  4. BAMIFIX [Concomitant]
  5. LEVOTHYROXINE SODIUM [Concomitant]
  6. DIGOXIN [Concomitant]
  7. CALCORT [Concomitant]
  8. ALDACTONE [Concomitant]
  9. WARFARIN SODIUM [Concomitant]

REACTIONS (2)
  - SUDDEN DEATH [None]
  - DEATH [None]
